FAERS Safety Report 21459482 (Version 3)
Quarter: 2022Q4

REPORT INFORMATION
  Report Type: Report from Study
  Country: US (occurrence: US)
  Receive Date: 20221014
  Receipt Date: 20221125
  Transmission Date: 20230113
  Serious: No
  Sender: FDA-Public Use
  Company Number: US-ABBVIE-4145973

PATIENT
  Sex: Female

DRUGS (13)
  1. VENCLEXTA [Suspect]
     Active Substance: VENETOCLAX
     Indication: Acute myeloid leukaemia (in remission)
     Dosage: 4 TABLETS ON DAY 2 , STRENGTH 100 MILLIGRAM
     Route: 048
  2. VENCLEXTA [Suspect]
     Active Substance: VENETOCLAX
     Indication: Acute myeloid leukaemia (in remission)
     Dosage: TIME INTERVAL: 0.16666667 DAYS: ON DAYS 3-28 WITH FOOD AND FULL GLASS OF WATER, STRENGTH 100 MILL...
     Route: 048
  3. VENCLEXTA [Suspect]
     Active Substance: VENETOCLAX
     Indication: Acute myeloid leukaemia (in remission)
     Dosage: TAKE 2 TABLETS BY MOUTH ON DAY 1, STRENGTH 100 MILLIGRAM
     Route: 048
  4. VENCLEXTA [Suspect]
     Active Substance: VENETOCLAX
     Indication: Acute myeloid leukaemia (in remission)
     Dosage: 6 TABLETS DAILY ON DAYS 3-28 WITH FOOD AND FULL GLASS OF WATER?100 MG
     Route: 048
     Dates: end: 20221003
  5. VENCLEXTA [Suspect]
     Active Substance: VENETOCLAX
     Indication: Acute myeloid leukaemia (in remission)
     Dosage: TAKE 2 TABLETS BY MOUTH ON DAY 1
     Route: 048
     Dates: start: 20220920
  6. VENCLEXTA [Suspect]
     Active Substance: VENETOCLAX
     Indication: Acute myeloid leukaemia (in remission)
     Dosage: 4 TABLETS ON DAY 2?100 MG
     Route: 048
  7. VENCLEXTA [Suspect]
     Active Substance: VENETOCLAX
     Indication: Acute myeloid leukaemia (in remission)
     Dosage: 6 TABLETS DAILY ON DAYS 3-28 WITH FOOD AND FULL GLASS OF WATER?100 MG
     Route: 048
     Dates: end: 20221003
  8. VENCLEXTA [Suspect]
     Active Substance: VENETOCLAX
     Indication: Acute myeloid leukaemia (in remission)
     Dosage: 100 MG
     Route: 048
  9. VENCLEXTA [Suspect]
     Active Substance: VENETOCLAX
     Indication: Acute myeloid leukaemia (in remission)
     Dosage: 4 TABLETS ON DAY 2?100 MG
     Route: 048
  10. VENCLEXTA [Suspect]
     Active Substance: VENETOCLAX
     Indication: Acute myeloid leukaemia (in remission)
     Dosage: TAKE 2 TABLETS BY MOUTH ON DAY 1?100 MG
     Route: 048
     Dates: start: 20220920
  11. CLADRIBINE [Concomitant]
     Active Substance: CLADRIBINE
     Indication: Product used for unknown indication
  12. CLADRIBINE [Concomitant]
     Active Substance: CLADRIBINE
     Indication: Product used for unknown indication
     Route: 065
  13. ZARXIO [Concomitant]
     Active Substance: FILGRASTIM-SNDZ
     Indication: White blood cell count abnormal

REACTIONS (4)
  - Off label use [Unknown]
  - Renal disorder [Unknown]
  - White blood cell count abnormal [Unknown]
  - Red blood cell count abnormal [Unknown]
